FAERS Safety Report 6795670-7 (Version None)
Quarter: 2010Q2

REPORT INFORMATION
  Report Type: 
  Country: None (occurrence: None)
  Receive Date: 20100625
  Receipt Date: 20100619
  Transmission Date: 20101027
  Serious: Yes (Hospitalization)
  Sender: FDA-Public Use
  Company Number: IT-ELI_LILLY_AND_COMPANY-IT201006005375

PATIENT
  Sex: Male

DRUGS (1)
  1. ALIMTA [Suspect]
     Indication: PLEURAL MESOTHELIOMA MALIGNANT
     Dosage: 800 MG/M2, PER BODY SURFACE AREA PER CYCLE
     Route: 042
     Dates: start: 20100402

REACTIONS (2)
  - ANAEMIA [None]
  - GRANULOCYTOPENIA [None]
